FAERS Safety Report 4411283-6 (Version None)
Quarter: 2004Q3

REPORT INFORMATION
  Report Type: 
  Country: None (occurrence: None)
  Receive Date: 20040727
  Receipt Date: 20040720
  Transmission Date: 20050211
  Serious: Yes (Hospitalization)
  Sender: FDA-Public Use
  Company Number: TR-JNJFOC-20040705451

PATIENT
  Age: 3 Day
  Sex: Male
  Weight: 1.1 kg

DRUGS (1)
  1. IBUPROFEN [Suspect]
     Indication: PATENT DUCTUS ARTERIOSUS
     Dosage: SEE IMAGE
     Route: 048

REACTIONS (6)
  - ABDOMINAL DISTENSION [None]
  - BILE OUTPUT [None]
  - LEUKOCYTOSIS [None]
  - NEONATAL DISORDER [None]
  - PNEUMOPERITONEUM [None]
  - SKIN DISCOLOURATION [None]
